FAERS Safety Report 5899703-1 (Version None)
Quarter: 2008Q3

REPORT INFORMATION
  Report Type: 
  Country: None (occurrence: None)
  Receive Date: 20080926
  Receipt Date: 20080913
  Transmission Date: 20090109
  Serious: Yes (Other)
  Sender: FDA-Public Use
  Company Number: CA-LLY-CA200608002694

PATIENT
  Sex: Female

DRUGS (7)
  1. FORTEO [Suspect]
     Indication: OSTEOPOROSIS
     Dosage: 20 UG, DAILY (1/D)
     Dates: start: 20050705, end: 20060808
  2. PARIET                                  /JPN/ [Concomitant]
     Indication: ABDOMINAL PAIN UPPER
     Dosage: 10 MG, DAILY (1/D)
  3. METAMUCIL [Concomitant]
  4. VITAMINS NOS [Concomitant]
  5. COD-LIVER OIL [Concomitant]
  6. GRAVOL TAB [Concomitant]
  7. DIGESTIVES, INCL ENZYMES [Concomitant]

REACTIONS (8)
  - BLOOD CHLORIDE DECREASED [None]
  - EXTRASKELETAL OSTEOSARCOMA [None]
  - HAEMATOCRIT DECREASED [None]
  - HAEMOGLOBIN DECREASED [None]
  - NEURILEMMOMA MALIGNANT [None]
  - POSTOPERATIVE WOUND INFECTION [None]
  - SKIN DISCOLOURATION [None]
  - WEIGHT INCREASED [None]
